FAERS Safety Report 5221139-7 (Version None)
Quarter: 2007Q1

REPORT INFORMATION
  Report Type: 
  Country: None (occurrence: None)
  Receive Date: 20070126
  Receipt Date: 20070112
  Transmission Date: 20070707
  Serious: Yes (Hospitalization)
  Sender: FDA-Public Use
  Company Number: US-JNJFOC-20070103257

PATIENT
  Age: 27 Year
  Sex: Female

DRUGS (1)
  1. FENTANYL [Suspect]
     Indication: DRUG ABUSER
     Route: 048

REACTIONS (5)
  - BOWEL SOUNDS ABNORMAL [None]
  - DRUG DIVERSION [None]
  - INTENTIONAL DRUG MISUSE [None]
  - MIOSIS [None]
  - UNRESPONSIVE TO STIMULI [None]
